FAERS Safety Report 13798360 (Version 1)
Quarter: 2017Q3

REPORT INFORMATION
  Report Type: Report from Study
  Country: US (occurrence: US)
  Receive Date: 20170727
  Receipt Date: 20170727
  Transmission Date: 20171127
  Serious: Yes (Other)
  Sender: FDA-Public Use
  Company Number: US-AMGEN-USASL2017109779

PATIENT
  Age: 69 Year
  Sex: Female

DRUGS (1)
  1. REPATHA [Suspect]
     Active Substance: EVOLOCUMAB
     Indication: HYPERCHOLESTEROLAEMIA
     Dosage: 140 MG, Q2WK
     Route: 065
     Dates: start: 2016

REACTIONS (10)
  - Exostosis [Unknown]
  - Arthralgia [Unknown]
  - Contusion [Unknown]
  - Throat tightness [Unknown]
  - Injection site bruising [Unknown]
  - Bursitis [Unknown]
  - Fall [Unknown]
  - Arthropathy [Unknown]
  - Injection site pain [Unknown]
  - Choking sensation [Not Recovered/Not Resolved]

NARRATIVE: CASE EVENT DATE: 2016
